FAERS Safety Report 9351034 (Version 1)
Quarter: 2013Q2

REPORT INFORMATION
  Report Type: Spontaneous
  Country: US (occurrence: US)
  Receive Date: 20130617
  Receipt Date: 20130617
  Transmission Date: 20140414
  Serious: Yes (Hospitalization)
  Sender: FDA-Public Use
  Company Number: US-INCYTE CORPORATION-2013IN001243

PATIENT
  Sex: Female

DRUGS (4)
  1. JAKAFI [Suspect]
     Indication: POLYCYTHAEMIA VERA
     Dosage: 15 MG, QD
     Route: 048
     Dates: start: 20120502
  2. ASPIRIN [Concomitant]
     Dosage: 325 MG
  3. LOVASTATIN [Concomitant]
     Dosage: 20 MG
  4. METFORMIN [Concomitant]
     Dosage: 500 MG

REACTIONS (1)
  - Cerebrovascular accident [Unknown]
